FAERS Safety Report 9794699 (Version 2)
Quarter: 2014Q1

REPORT INFORMATION
  Report Type: Spontaneous
  Country: US (occurrence: US)
  Receive Date: 20140102
  Receipt Date: 20140102
  Transmission Date: 20141002
  Serious: No
  Sender: FDA-Public Use
  Company Number: US-BAXTER-2013BAX010032

PATIENT
  Age: 54 Year
  Sex: Male
  Weight: 64.01 kg

DRUGS (3)
  1. TISSEEL VH S/D [Suspect]
     Indication: PTERYGIUM OPERATION
     Route: 065
     Dates: start: 20130228, end: 20130228
  2. TISSEEL VH S/D [Suspect]
     Indication: OFF LABEL USE
  3. AMOXICILLIN [Concomitant]
     Indication: PRODUCT USED FOR UNKNOWN INDICATION
     Route: 065

REACTIONS (1)
  - Graft complication [Recovered/Resolved]
